FAERS Safety Report 21563795 (Version 1)
Quarter: 2022Q4

REPORT INFORMATION
  Report Type: Report from Study
  Country: US (occurrence: US)
  Receive Date: 20221108
  Receipt Date: 20221108
  Transmission Date: 20230113
  Serious: Yes (Other)
  Sender: FDA-Public Use
  Company Number: US-SAMOHPHARM-2021002493

PATIENT

DRUGS (2)
  1. CYSTADANE [Suspect]
     Active Substance: BETAINE
     Indication: Methylenetetrahydrofolate reductase deficiency
     Dosage: 6 SCOOPS  TWICE DAILY, 6 GRAMS IN THE MORNING AND 6 GRAMS AT NIGHT
     Route: 048
  2. CYSTADANE [Suspect]
     Active Substance: BETAINE
     Indication: Coagulopathy

REACTIONS (8)
  - Fall [Recovered/Resolved]
  - Pelvic fracture [Recovered/Resolved]
  - Hip fracture [Recovered/Resolved]
  - Head injury [Recovered/Resolved]
  - Fall [Recovered/Resolved]
  - Swelling [Recovered/Resolved]
  - Joint injury [Recovered/Resolved]
  - Off label use [Recovered/Resolved]

NARRATIVE: CASE EVENT DATE: 20210608
